FAERS Safety Report 9513347 (Version 1)
Quarter: 2013Q1

REPORT INFORMATION
  Report Type: Spontaneous
  Country: US (occurrence: None)
  Receive Date: 20130305
  Receipt Date: 20130305
  Transmission Date: 20140127
  Serious: Yes (Other)
  Sender: FDA-Public Use
  Company Number: 163-21880-12101622

PATIENT
  Age: 62 Year
  Sex: Male
  Weight: 94.8 kg

DRUGS (14)
  1. REVLIMID (LENALIDOMIDE) (25 MILLIGRAM, CAPSULES) [Suspect]
     Indication: PLASMA CELL MYELOMA
     Dosage: 25 MG, 14 IN 21 D
     Route: 048
     Dates: start: 20120726
  2. BORTEZOMIB (BORTEZOMIB) [Concomitant]
  3. ASPIRIN (ACETYLSALICYLIC ACID) [Concomitant]
  4. CYCLOBENZAPRINE (CYCLOBENZAPRINE) [Concomitant]
  5. DEXAMETHASONE (DEXAMETHASONE) [Concomitant]
  6. IBUPROFEN (IBUPROFEN) [Concomitant]
  7. LEVOFLOXACIN (LEVOFLOXACIN) [Concomitant]
  8. PROMETHAZINE (PROMETHAZINE) [Concomitant]
  9. METOCLOPRAMIDE (METOCLOPRAMIDE) [Concomitant]
  10. DOCUSATE (DOCUSATE) [Concomitant]
  11. METOPROLOL SUCCINATE (METOPROLOL SUCCINATE) [Concomitant]
  12. ONDANSETRON (ONDANSETRON) [Concomitant]
  13. LISINOPRIL/HYDROCHLOROTHIAZIDE (PRINZIDE) [Concomitant]
  14. ZOLEDRONIC ACID (ZOLEDRONIC ACID) [Concomitant]

REACTIONS (2)
  - Syncope [None]
  - Plasma cell myeloma [None]
